FAERS Safety Report 5042592-8 (Version None)
Quarter: 2006Q2

REPORT INFORMATION
  Report Type: 
  Country: None (occurrence: None)
  Receive Date: 20060627
  Receipt Date: 20060615
  Transmission Date: 20061013
  Serious: Yes (Hospitalization)
  Sender: FDA-Public Use
  Company Number: 2006077702

PATIENT
  Age: 73 Year
  Sex: Female
  Weight: 51.3 kg

DRUGS (7)
  1. SOLU-MEDROL [Suspect]
     Indication: LYMPHOMA
     Dosage: 250 MG (250 MG, 1 IN 1 D) INTRAVENOUS
     Route: 042
     Dates: start: 20060130, end: 20060302
  2. CISPLATIN [Suspect]
     Indication: LYMPHOMA
     Dosage: 35 MG (35 MG, 1 IN 1 D) INTRAVENOUS
     Route: 042
     Dates: start: 20060130, end: 20060302
  3. CYTARABINE [Suspect]
     Indication: LYMPHOMA
     Dosage: 2800 MG (2800 MG, 1 IN 1D) INTRAVENOUS
     Route: 042
     Dates: start: 20060203, end: 20060303
  4. VEPESID [Suspect]
     Indication: LYMPHOMA
     Dosage: 57 MG (57 MG, 1 IN 1 D) INTRAVENOUS
     Route: 042
     Dates: start: 20060130, end: 20060302
  5. LASIX [Concomitant]
  6. ALL OTHER THERAPEUTIC PRODUCTS [Concomitant]
  7. PRIMPERAN TAB [Concomitant]

REACTIONS (3)
  - BONE MARROW FAILURE [None]
  - DRUG INEFFECTIVE [None]
  - DRUG RESISTANCE [None]
